FAERS Safety Report 8738737 (Version 2)
Quarter: 2012Q4

REPORT INFORMATION
  Report Type: 
  Country: JP (occurrence: JP)
  Receive Date: 20120823
  Receipt Date: 20120829
  Transmission Date: 20130627
  Serious: Yes (Other)
  Sender: FDA-Public Use
  Company Number: JP-PFIZER INC-2012197538

PATIENT
  Age: 48 Year
  Sex: Male

DRUGS (6)
  1. CHAMPIX [Suspect]
     Dosage: 1 mg/day
     Route: 048
     Dates: start: 20110726
  2. CHAMPIX [Suspect]
     Dosage: 2 mg/day
     Route: 048
  3. NAUZELIN [Concomitant]
     Dosage: UNK
     Route: 048
  4. TAKEPRON OD [Concomitant]
     Dosage: UNK
     Route: 048
  5. GASMOTIN [Concomitant]
     Dosage: UNK
     Route: 048
  6. GASTER [Concomitant]
     Dosage: UNK
     Route: 048

REACTIONS (3)
  - Cerebral infarction [Unknown]
  - Cerebellar syndrome [Not Recovered/Not Resolved]
  - Dizziness [Not Recovered/Not Resolved]
